FAERS Safety Report 6710697-9 (Version None)
Quarter: 2010Q2

REPORT INFORMATION
  Report Type: 
  Country: None (occurrence: None)
  Receive Date: 20100504
  Receipt Date: 20100504
  Transmission Date: 20101027
  Serious: No
  Sender: FDA-Public Use
  Company Number: None

PATIENT
  Age: 8 Month
  Sex: Male

DRUGS (2)
  1. CHILDREN'S TYLENOL CHERRY FREE DYE [Suspect]
  2. CHILDREN'S TYLENOL GRAPE FREE DYE [Concomitant]

REACTIONS (5)
  - EAR INFECTION [None]
  - PRODUCT CONTAMINATION PHYSICAL [None]
  - PRODUCT DROPPER ISSUE [None]
  - PRODUCT QUALITY ISSUE [None]
  - VOMITING [None]
